FAERS Safety Report 15405631 (Version 1)
Quarter: 2018Q3

REPORT INFORMATION
  Report Type: Spontaneous
  Country: IT (occurrence: IT)
  Receive Date: 20180920
  Receipt Date: 20180920
  Transmission Date: 20181010
  Serious: Yes (Other)
  Sender: FDA-Public Use
  Company Number: IT-ACCORD-071798

PATIENT
  Age: 58 Year
  Sex: Female

DRUGS (8)
  1. IRINOTECAN [Suspect]
     Active Substance: IRINOTECAN
     Indication: ADENOCARCINOMA PANCREAS
     Dosage: DAY 8
     Route: 042
     Dates: start: 2014
  2. LACTOFERRIN [Concomitant]
     Active Substance: LACTOFERRIN
     Indication: ADENOCARCINOMA PANCREAS
     Dosage: 4 TIMES/D
  3. MELATONIN [Concomitant]
     Active Substance: MELATONIN
     Indication: ADENOCARCINOMA PANCREAS
  4. FLUOROURACIL. [Suspect]
     Active Substance: FLUOROURACIL
     Indication: PANCREATIC CARCINOMA METASTATIC
     Dosage: OVER 46 HOURS
     Route: 042
  5. CURCUMA LONGA [Concomitant]
     Active Substance: HERBALS\TURMERIC
     Indication: ADENOCARCINOMA PANCREAS
  6. OXALIPLATIN. [Suspect]
     Active Substance: OXALIPLATIN
     Indication: ADENOCARCINOMA PANCREAS
     Dosage: DAY 1
     Route: 042
     Dates: start: 2014
  7. VISCUM ALBUM [Concomitant]
     Active Substance: VISCUM ALBUM FRUITING TOP
     Indication: ADENOCARCINOMA PANCREAS
     Dosage: 1 VIAL, 3 TIMES/WK
     Route: 058
  8. FLUOROURACIL. [Suspect]
     Active Substance: FLUOROURACIL
     Indication: ADENOCARCINOMA PANCREAS
     Dosage: DAY 21
     Route: 042
     Dates: start: 2014

REACTIONS (10)
  - Off label use [Unknown]
  - Peripheral sensory neuropathy [Unknown]
  - Nausea [Recovered/Resolved]
  - Decreased appetite [Recovered/Resolved]
  - Asthenia [Recovered/Resolved]
  - Pain [Recovered/Resolved]
  - Vomiting [Recovered/Resolved]
  - Impaired quality of life [Recovered/Resolved]
  - Fatigue [Recovered/Resolved]
  - Alopecia [Recovered/Resolved]
